FAERS Safety Report 6404209-7 (Version None)
Quarter: 2009Q4

REPORT INFORMATION
  Report Type: 
  Country: None (occurrence: None)
  Receive Date: 20091016
  Receipt Date: 20091005
  Transmission Date: 20100525
  Serious: Yes (Other)
  Sender: FDA-Public Use
  Company Number: US-PFIZER INC-2009279046

PATIENT
  Age: 5 Year
  Sex: Female

DRUGS (3)
  1. REVATIO [Suspect]
     Indication: PULMONARY ARTERIAL HYPERTENSION
     Dosage: 40 MG, 3X/DAY
  2. REVATIO [Suspect]
     Dosage: 1/2 DOSE IN LIQUID
  3. REVATIO [Suspect]
     Dosage: 1/2 DOSE IN TABLETS

REACTIONS (2)
  - COLITIS [None]
  - THERAPEUTIC RESPONSE UNEXPECTED [None]
